FAERS Safety Report 16914167 (Version 2)
Quarter: 2019Q4

REPORT INFORMATION
  Report Type: Spontaneous
  Country: US (occurrence: US)
  Receive Date: 20191014
  Receipt Date: 20191015
  Transmission Date: 20200122
  Serious: Yes (Other)
  Sender: FDA-Public Use
  Company Number: US-PFIZER INC-2019432432

PATIENT
  Age: 60 Year
  Sex: Male

DRUGS (1)
  1. AMPICILLIN SODIUM. [Suspect]
     Active Substance: AMPICILLIN SODIUM
     Indication: MENINGITIS LISTERIA
     Dosage: UNK

REACTIONS (2)
  - Meningitis aseptic [Recovering/Resolving]
  - Condition aggravated [Recovering/Resolving]
